FAERS Safety Report 10912282 (Version 3)
Quarter: 2015Q2

REPORT INFORMATION
  Report Type: Spontaneous
  Country: FR (occurrence: None)
  Receive Date: 20150310
  Receipt Date: 20150515
  Transmission Date: 20150821
  Serious: Yes (Death)
  Sender: FDA-Public Use
  Company Number: FR-20150056

PATIENT
  Age: 30 Year
  Sex: Female

DRUGS (2)
  1. VENTOLIN [Concomitant]
     Active Substance: ALBUTEROL SULFATE
  2. DOTAREM [Suspect]
     Active Substance: GADOTERATE MEGLUMINE
     Indication: NUCLEAR MAGNETIC RESONANCE IMAGING
     Dosage: 15 ML (15 ML, 1 IN 1 D) INTRAVENOUS (NOT OTHERWISE SPECIFIED)
     Route: 042
     Dates: start: 20150221, end: 20150221

REACTIONS (8)
  - Coma [None]
  - Urinary incontinence [None]
  - Brain oedema [None]
  - Loss of consciousness [None]
  - Anaphylactic shock [None]
  - Vomiting [None]
  - Bronchospasm [None]
  - Cardiac arrest [None]

NARRATIVE: CASE EVENT DATE: 20150221
